FAERS Safety Report 6220259-8 (Version None)
Quarter: 2009Q2

REPORT INFORMATION
  Report Type: 
  Country: None (occurrence: None)
  Receive Date: 20090605
  Receipt Date: 20090527
  Transmission Date: 20091009
  Serious: Yes (Other)
  Sender: FDA-Public Use
  Company Number: FRP09000591

PATIENT
  Age: 54 Year
  Sex: Female

DRUGS (4)
  1. ACTONEL [Suspect]
     Indication: OSTEOPOROSIS
     Dosage: 35 MG, 1 /WEEK, ORAL
     Route: 048
     Dates: start: 20030101, end: 20050606
  2. FORSTEO /00978701/ (TERIPARATIDE) [Suspect]
     Indication: OSTEOPOROSIS
     Dosage: 20?G/80?L DAILY, SUBCUTANEOUS
     Route: 058
     Dates: start: 20050601, end: 20060501
  3. ZOMETA [Suspect]
     Indication: OSTEOPOROSIS
     Dosage: 4 MG, 1 ONLY, IV NOS
     Route: 042
     Dates: start: 20061016, end: 20061016
  4. ZOMETA [Suspect]
     Indication: OSTEOPOROSIS
     Dosage: 4 MG, 1 ONLY, IV NOS
     Route: 042
     Dates: start: 20071130, end: 20071130

REACTIONS (5)
  - BONE PAIN [None]
  - CONGENITAL OSTEODYSTROPHY [None]
  - GAIT DISTURBANCE [None]
  - OSTEITIS DEFORMANS [None]
  - RADIOISOTOPE SCAN ABNORMAL [None]
